FAERS Safety Report 10270778 (Version 2)
Quarter: 2014Q3

REPORT INFORMATION
  Report Type: Spontaneous
  Country: IT (occurrence: None)
  Receive Date: 20140626
  Receipt Date: 20140703
  Transmission Date: 20150326
  Serious: Yes (Other)
  Sender: FDA-Public Use
  Company Number: AUR-APL-2014-06110

PATIENT
  Age: 34 Year
  Sex: Female

DRUGS (1)
  1. ESCITALOPRAM 20 MG (ESCITALOPRAM) UNKNOWN, 20MG [Suspect]
     Active Substance: ESCITALOPRAM OXALATE
     Indication: DEPRESSION

REACTIONS (3)
  - Mania [None]
  - Therapy cessation [None]
  - Drug withdrawal syndrome [None]
